FAERS Safety Report 5896242-9 (Version None)
Quarter: 2008Q3

REPORT INFORMATION
  Report Type: 
  Country: None (occurrence: None)
  Receive Date: 20080924
  Receipt Date: 20080912
  Transmission Date: 20090109
  Serious: Yes (Disabling)
  Sender: FDA-Public Use
  Company Number: GB-PFIZER INC-2008063700

PATIENT
  Sex: Female
  Weight: 71 kg

DRUGS (2)
  1. DEPO-PROVERA SUSPENSION/INJ [Suspect]
     Indication: CONTRACEPTION
     Dates: start: 19960101, end: 19960101
  2. DEPO-PROVERA SUSPENSION/INJ [Suspect]
     Dates: start: 20070901, end: 20070901

REACTIONS (4)
  - CARPAL TUNNEL SYNDROME [None]
  - MOOD ALTERED [None]
  - MUSCULOSKELETAL PAIN [None]
  - PARAESTHESIA [None]
